FAERS Safety Report 7304024-6 (Version None)
Quarter: 2011Q1

REPORT INFORMATION
  Report Type: 
  Country: None (occurrence: None)
  Receive Date: 20110221
  Receipt Date: 20110211
  Transmission Date: 20110831
  Serious: Yes (Other)
  Sender: FDA-Public Use
  Company Number: AU-ABBOTT-11P-008-0706043-00

PATIENT
  Age: 61 Year
  Sex: Female

DRUGS (5)
  1. GANCICLOVIR [Concomitant]
     Indication: ANTIVIRAL PROPHYLAXIS
  2. CYCLOSPORINE [Suspect]
     Indication: IMMUNOSUPPRESSION
  3. PREDNISOLONE [Concomitant]
     Indication: IMMUNOSUPPRESSION
  4. CYTOMEGALOVIRUS HYPERIMMUNE GLOBULIN [Concomitant]
     Indication: ANTIVIRAL PROPHYLAXIS
  5. MYCOPHENOLATE MOFETIL [Concomitant]
     Indication: IMMUNOSUPPRESSION

REACTIONS (3)
  - COGNITIVE DISORDER [None]
  - AGITATION [None]
  - HALLUCINATION [None]
